FAERS Safety Report 14157134 (Version 1)
Quarter: 2017Q4

REPORT INFORMATION
  Report Type: Spontaneous
  Country: FR (occurrence: FR)
  Receive Date: 20171103
  Receipt Date: 20171103
  Transmission Date: 20180321
  Serious: Yes (Life-Threatening)
  Sender: FDA-Public Use
  Company Number: FR-PFIZER INC-2017470443

PATIENT
  Age: 50 Year
  Sex: Male

DRUGS (6)
  1. TRANEXAMIC ACID. [Concomitant]
     Active Substance: TRANEXAMIC ACID
     Dosage: UNK
     Route: 042
     Dates: start: 20171017, end: 20171017
  2. PROPOFOL. [Concomitant]
     Active Substance: PROPOFOL
     Dosage: UNK
     Route: 042
     Dates: start: 20171017, end: 20171017
  3. ATRACURIUM BESILATE [Suspect]
     Active Substance: ATRACURIUM BESYLATE
     Indication: INDUCTION OF ANAESTHESIA
     Dosage: 50 MG, 1X/DAY
     Route: 042
     Dates: start: 20171017, end: 20171017
  4. MIDAZOLAM [Suspect]
     Active Substance: MIDAZOLAM HYDROCHLORIDE
     Indication: SEDATION
     Dosage: 2 MG, 1X/DAY
     Route: 042
     Dates: start: 20171017, end: 20171017
  5. KETAMINE [Concomitant]
     Active Substance: KETAMINE
     Dosage: UNK
     Route: 042
     Dates: start: 20171017, end: 20171017
  6. SUFENTANIL [Concomitant]
     Active Substance: SUFENTANIL
     Dosage: UNK
     Route: 042
     Dates: start: 20171017, end: 20171017

REACTIONS (2)
  - Blood pressure decreased [Recovered/Resolved]
  - Rash erythematous [Recovered/Resolved]

NARRATIVE: CASE EVENT DATE: 20171017
